FAERS Safety Report 15755385 (Version 1)
Quarter: 2018Q4

REPORT INFORMATION
  Report Type: Spontaneous
  Country: FR (occurrence: FR)
  Receive Date: 20181224
  Receipt Date: 20181224
  Transmission Date: 20190205
  Serious: Yes (Hospitalization, Other)
  Sender: FDA-Public Use
  Company Number: FR-AUROBINDO-AUR-APL-2018-061284

PATIENT
  Age: 76 Year
  Sex: Female
  Weight: 64 kg

DRUGS (5)
  1. RIFADINE                           /00146901/ [Suspect]
     Active Substance: RIFAMPIN
     Indication: SEPTIC ARTHRITIS STAPHYLOCOCCAL
     Dosage: 900 MILLIGRAM, ONCE A DAY
     Route: 048
     Dates: start: 20181027, end: 20181107
  2. OFLOXACINE [Concomitant]
     Active Substance: OFLOXACIN
     Indication: SEPTIC ARTHRITIS STAPHYLOCOCCAL
     Dosage: 600 MILLIGRAM, ONCE A DAY, POSO DECREASED TO 200MG / D FOLLOWING THE IRA
     Route: 048
     Dates: start: 20181027, end: 20181129
  3. METFORMIN [Suspect]
     Active Substance: METFORMIN HYDROCHLORIDE
     Indication: TYPE 2 DIABETES MELLITUS
     Dosage: 2550 MILLIGRAM, ONCE A DAY
     Route: 048
     Dates: end: 20181107
  4. BISOPROLOL/HCTZ FILM-COATED TABLET 10/6.25 MG [Suspect]
     Active Substance: BISOPROLOL FUMARATE\HYDROCHLOROTHIAZIDE
     Indication: HYPERTENSION
     Dosage: 1 DOSAGE FORM, ONCE A DAY
     Route: 048
     Dates: end: 20181107
  5. KARDEGIC [Concomitant]
     Active Substance: ASPIRIN DL-LYSINE
     Indication: PRODUCT USED FOR UNKNOWN INDICATION
     Dosage: 75 MILLIGRAM, ONCE A DAY
     Route: 048

REACTIONS (4)
  - Diarrhoea [Recovered/Resolved]
  - Acute kidney injury [Recovering/Resolving]
  - Nausea [Recovered/Resolved]
  - Vomiting [Recovered/Resolved]

NARRATIVE: CASE EVENT DATE: 201811
